FAERS Safety Report 14035324 (Version 5)
Quarter: 2018Q1

REPORT INFORMATION
  Report Type: Report from Study
  Country: JP (occurrence: JP)
  Receive Date: 20171003
  Receipt Date: 20180208
  Transmission Date: 20180508
  Serious: Yes (Other)
  Sender: FDA-Public Use
  Company Number: JP-AMGEN-JPNCT2017146973

PATIENT
  Age: 70 Year
  Sex: Male

DRUGS (18)
  1. SOLDEM 3A [Concomitant]
     Active Substance: CARBOHYDRATES\POTASSIUM CHLORIDE\SODIUM CHLORIDE\SODIUM LACTATE
     Dosage: 500 ML, QD
     Route: 042
     Dates: start: 20170920, end: 20170920
  2. BUFFERIN COMBINATION [Concomitant]
     Dosage: 81 MG, QD
     Route: 048
     Dates: start: 20170921
  3. KENEI G [Concomitant]
     Active Substance: GLYCERIN
     Dosage: 150 ML, ONE TIME DOSE
     Route: 054
     Dates: start: 20170919, end: 20170919
  4. EVOLOCUMAB [Suspect]
     Active Substance: EVOLOCUMAB
     Indication: HYPERCHOLESTEROLAEMIA
     Dosage: 420 MG, Q4WK
     Route: 058
     Dates: start: 20140605, end: 20170921
  5. PREFILLED AUTOINJECTOR/PEN [Suspect]
     Active Substance: DEVICE
     Indication: HYPERCHOLESTEROLAEMIA
     Dosage: UNK
     Route: 058
     Dates: start: 20140605, end: 20170921
  6. NIFEDIPINE L [Concomitant]
     Dosage: 20 MG, BID
     Route: 048
     Dates: start: 19950608
  7. SOSEGON [Concomitant]
     Active Substance: PENTAZOCINE
     Dosage: 15 MG, ONE TIME DOSE
     Route: 042
     Dates: start: 20170919, end: 20170919
  8. MEIACT [Concomitant]
     Active Substance: CEFDITOREN PIVOXIL
     Dosage: 100 MG, TID
     Route: 048
     Dates: start: 20170920, end: 20170921
  9. CHICHINA [Concomitant]
     Dosage: 50 MG, BID
     Route: 042
     Dates: start: 20170919, end: 20170919
  10. OMNISCAN [Concomitant]
     Active Substance: GADODIAMIDE
     Dosage: 10 ML, ONE TIME DOSE
     Route: 042
     Dates: start: 20170905, end: 20170905
  11. SOLMALT [Concomitant]
     Dosage: 500 ML, TID
     Route: 042
     Dates: start: 20170919, end: 20170919
  12. TRANEXAMIC ACID. [Concomitant]
     Active Substance: TRANEXAMIC ACID
     Dosage: 500 MG, BID
     Route: 042
     Dates: start: 20170919, end: 20170919
  13. CEFAZOLIN SODIUM. [Concomitant]
     Active Substance: CEFAZOLIN SODIUM
     Dosage: 1 G, BID AND QD
     Route: 042
     Dates: start: 20170919, end: 20170920
  14. PROPOFOL. [Concomitant]
     Active Substance: PROPOFOL
     Dosage: 200 MG, ONE TIME DOSE
     Route: 042
     Dates: start: 20170919, end: 20170919
  15. PRAVASTATIN SODIUM. [Concomitant]
     Active Substance: PRAVASTATIN SODIUM
     Dosage: 5 MG, BID
     Route: 048
     Dates: start: 19940719
  16. SENNOSIDE [Concomitant]
     Active Substance: SENNOSIDES
     Dosage: 24 MG, ONE TIME DOSE
     Route: 048
     Dates: start: 20170918, end: 20170918
  17. SEVOFLURANE. [Concomitant]
     Active Substance: SEVOFLURANE
     Dosage: 10 ML, ONE TIME DOSE
     Route: 055
     Dates: start: 20170919, end: 20170919
  18. CAPTOPRIL R [Concomitant]
     Dosage: 18.75 MG, BID
     Route: 048
     Dates: start: 19920513

REACTIONS (1)
  - Prostate cancer [Not Recovered/Not Resolved]

NARRATIVE: CASE EVENT DATE: 20170926
